FAERS Safety Report 18920984 (Version 1)
Quarter: 2021Q1

REPORT INFORMATION
  Report Type: Spontaneous
  Country: US (occurrence: US)
  Receive Date: 20210222
  Receipt Date: 20210222
  Transmission Date: 20210420
  Serious: Yes (Other)
  Sender: FDA-Public Use
  Company Number: US-AUROBINDO-AUR-APL-2021-006539

PATIENT
  Age: 51 Year
  Sex: Male

DRUGS (4)
  1. NALOXONE HYDROCHLORIDE. [Suspect]
     Active Substance: NALOXONE HYDROCHLORIDE
     Indication: DETOXIFICATION
     Dosage: UNK
     Route: 065
  2. PROPOFOL. [Suspect]
     Active Substance: PROPOFOL
     Indication: DETOXIFICATION
     Dosage: UNK
     Route: 065
  3. SEVOFLURANE. [Suspect]
     Active Substance: SEVOFLURANE
     Indication: DETOXIFICATION
     Dosage: UNK
     Route: 065
  4. CLONIDINE. [Suspect]
     Active Substance: CLONIDINE
     Indication: DETOXIFICATION
     Dosage: UNK
     Route: 065

REACTIONS (6)
  - Ventricular fibrillation [Unknown]
  - Hypertension [Unknown]
  - Hypokalaemia [Unknown]
  - Hypoxic-ischaemic encephalopathy [Unknown]
  - Agitation [Unknown]
  - Tachycardia [Unknown]
